FAERS Safety Report 11220208 (Version 1)
Quarter: 2015Q2

REPORT INFORMATION
  Report Type: Report from Study
  Country: US (occurrence: US)
  Receive Date: 20150625
  Receipt Date: 20150625
  Transmission Date: 20150821
  Serious: No
  Sender: FDA-Public Use
  Company Number: US-EXELIXIS-CABO-15005463

PATIENT
  Sex: Male

DRUGS (2)
  1. MIRALAX [Concomitant]
     Active Substance: POLYETHYLENE GLYCOL 3350
  2. CABOZANTINIB [Suspect]
     Active Substance: CABOZANTINIB
     Indication: THYROID CANCER
     Dosage: 140 MG, QD
     Route: 048
     Dates: start: 20150506

REACTIONS (8)
  - Abdominal discomfort [Unknown]
  - Dizziness [Unknown]
  - Dysphagia [Unknown]
  - Constipation [Unknown]
  - Tumour invasion [Unknown]
  - Pain in jaw [Unknown]
  - Headache [Unknown]
  - Decreased appetite [Unknown]
